FAERS Safety Report 17058186 (Version 2)
Quarter: 2020Q2

REPORT INFORMATION
  Report Type: Spontaneous
  Country: US (occurrence: US)
  Receive Date: 20191121
  Receipt Date: 20200626
  Transmission Date: 20200713
  Serious: Yes (Other)
  Sender: FDA-Public Use
  Company Number: US-ASTRAZENECA-2019SF64883

PATIENT
  Age: 51 Year
  Sex: Female
  Weight: 127 kg

DRUGS (29)
  1. AMOXICILLIN. [Concomitant]
     Active Substance: AMOXICILLIN
  2. CITALOPRAM [Concomitant]
     Active Substance: CITALOPRAM HYDROBROMIDE
  3. TRAZODONE [Concomitant]
     Active Substance: TRAZODONE HYDROCHLORIDE
  4. ZOCOR [Concomitant]
     Active Substance: SIMVASTATIN
  5. HUMULIN NOS [Concomitant]
     Active Substance: INSULIN HUMAN
  6. ASACOL [Concomitant]
     Active Substance: MESALAMINE
  7. PROVENTIL HFA [Concomitant]
     Active Substance: ALBUTEROL SULFATE
  8. FLAGYL [Concomitant]
     Active Substance: METRONIDAZOLE\METRONIDAZOLE HYDROCHLORIDE
  9. HYDRALAZINE [Concomitant]
     Active Substance: HYDRALAZINE HYDROCHLORIDE
  10. PROCRIT [Concomitant]
     Active Substance: ERYTHROPOIETIN
  11. WARFARIN [Concomitant]
     Active Substance: WARFARIN
  12. NITROFURANTOIN. [Concomitant]
     Active Substance: NITROFURANTOIN
  13. CEFUROXIME. [Concomitant]
     Active Substance: CEFUROXIME
  14. AMLODIPINE BESYLATE. [Concomitant]
     Active Substance: AMLODIPINE BESYLATE
  15. CIPROFLOXACIN. [Concomitant]
     Active Substance: CIPROFLOXACIN
  16. NEXIUM [Suspect]
     Active Substance: ESOMEPRAZOLE MAGNESIUM
     Indication: GASTROOESOPHAGEAL REFLUX DISEASE
     Route: 048
     Dates: start: 200912, end: 201511
  17. ASPIRIN. [Concomitant]
     Active Substance: ASPIRIN
  18. METOPROLOL. [Concomitant]
     Active Substance: METOPROLOL
  19. PREDNISONE. [Concomitant]
     Active Substance: PREDNISONE
     Indication: COLITIS ULCERATIVE
     Route: 065
     Dates: start: 2010, end: 2011
  20. CALMOSEPTINE [Concomitant]
     Active Substance: MENTHOL\ZINC OXIDE
  21. PREDNISONE. [Concomitant]
     Active Substance: PREDNISONE
  22. LASIX [Concomitant]
     Active Substance: FUROSEMIDE
  23. ENDOCET [Concomitant]
     Active Substance: ACETAMINOPHEN\OXYCODONE HYDROCHLORIDE
  24. WARFARIN [Concomitant]
     Active Substance: WARFARIN
     Indication: ANTICOAGULANT THERAPY
     Route: 065
     Dates: start: 2010, end: 2014
  25. CITALOPRAM [Concomitant]
     Active Substance: CITALOPRAM HYDROBROMIDE
     Indication: DEPRESSION
     Route: 065
     Dates: start: 2010, end: 2014
  26. AMOXICILLIN/CLAVULANATE [Concomitant]
     Active Substance: AMOXICILLIN\CLAVULANATE POTASSIUM
  27. NEXIUM [Suspect]
     Active Substance: ESOMEPRAZOLE MAGNESIUM
     Indication: GASTROOESOPHAGEAL REFLUX DISEASE
     Route: 048
     Dates: start: 2009, end: 2014
  28. ATORVASTATIN [Concomitant]
     Active Substance: ATORVASTATIN
  29. AVALIDE [Concomitant]
     Active Substance: HYDROCHLOROTHIAZIDE\IRBESARTAN

REACTIONS (7)
  - End stage renal disease [Not Recovered/Not Resolved]
  - Nephrogenic anaemia [Unknown]
  - Acute kidney injury [Unknown]
  - Renal failure [Unknown]
  - Depression [Not Recovered/Not Resolved]
  - Azotaemia [Unknown]
  - Chronic kidney disease [Unknown]

NARRATIVE: CASE EVENT DATE: 2010
